FAERS Safety Report 8274511-5 (Version None)
Quarter: 2012Q2

REPORT INFORMATION
  Report Type: 
  Country: None (occurrence: None)
  Receive Date: 20120411
  Receipt Date: 20120314
  Transmission Date: 20120825
  Serious: Yes (Death, Hospitalization)
  Sender: FDA-Public Use
  Company Number: US-ROCHE-1052136

PATIENT
  Sex: Female
  Weight: 57.2 kg

DRUGS (1)
  1. MABTHERA [Suspect]
     Indication: RHEUMATOID ARTHRITIS
     Dosage: DATE OF LAST DOSE PRIOR TO SAE 28/11/2007
     Route: 042
     Dates: start: 20071113

REACTIONS (2)
  - SEPSIS [None]
  - PNEUMONIA [None]
